FAERS Safety Report 14073004 (Version 1)
Quarter: 2017Q4

REPORT INFORMATION
  Report Type: Spontaneous
  Country: US (occurrence: US)
  Receive Date: 20171010
  Receipt Date: 20171010
  Transmission Date: 20180321
  Serious: No
  Sender: FDA-Public Use
  Company Number: US-JNJFOC-20170914437

PATIENT
  Age: 24 Month
  Sex: Female
  Weight: 12.25 kg

DRUGS (2)
  1. CHILDRENS MOTRIN [Suspect]
     Active Substance: IBUPROFEN
     Indication: ACCIDENTAL EXPOSURE TO PRODUCT
     Dosage: ALMOST 4 FLUID OUNCES.
     Route: 048
     Dates: start: 20170913
  2. CHILDRENS MOTRIN [Suspect]
     Active Substance: IBUPROFEN
     Route: 048

REACTIONS (1)
  - Accidental overdose [Unknown]

NARRATIVE: CASE EVENT DATE: 20170913
